FAERS Safety Report 4440855-8 (Version None)
Quarter: 2004Q3

REPORT INFORMATION
  Report Type: 
  Country: None (occurrence: None)
  Receive Date: 20040903
  Receipt Date: 20040719
  Transmission Date: 20050211
  Serious: Yes (Death, Other)
  Sender: FDA-Public Use
  Company Number: PHEH2004US07771

PATIENT
  Age: 60 Year
  Sex: Female

DRUGS (18)
  1. AREDIA [Suspect]
     Indication: BREAST CANCER METASTATIC
     Dosage: 90MG/ Q28DAYS
     Route: 042
     Dates: start: 19980928, end: 20020101
  2. ZYRTEC [Concomitant]
  3. WARFARIN SODIUM [Concomitant]
  4. MIRTAZAPINE [Concomitant]
  5. ZOMETA [Suspect]
     Indication: METASTASES TO BONE
  6. PROCRIT [Concomitant]
     Dates: start: 19990401, end: 20030501
  7. ARANESP [Concomitant]
     Dates: start: 20030501, end: 20031001
  8. FLUOROURACIL [Concomitant]
     Dates: start: 19911101, end: 19920301
  9. DOXORUBICIN HCL [Concomitant]
  10. THIOTEPA [Concomitant]
  11. CYCLOPHOSPHAMIDE [Concomitant]
  12. TAXOL [Concomitant]
     Dates: start: 19990301, end: 20010501
  13. XELODA [Concomitant]
     Dates: start: 20010601, end: 20010701
  14. NAVELBINE [Concomitant]
  15. GEMZAR [Concomitant]
  16. CARBOCAINE [Concomitant]
     Dates: start: 20040517
  17. XYLOCAIN-EPINEPHRIN [Concomitant]
  18. MARCAINE HCL W/ EPINEPHRINE [Concomitant]

REACTIONS (12)
  - ANAEMIA [None]
  - BONE DEBRIDEMENT [None]
  - BONE SCAN ABNORMAL [None]
  - COMPLETED SUICIDE [None]
  - DEEP VEIN THROMBOSIS [None]
  - JAW DISORDER [None]
  - METASTASES TO BONE [None]
  - OSTEONECROSIS [None]
  - PAIN IN JAW [None]
  - PRIMARY SEQUESTRUM [None]
  - SEQUESTRECTOMY [None]
  - TOOTH EXTRACTION [None]
